FAERS Safety Report 6432730-4 (Version None)
Quarter: 2009Q4

REPORT INFORMATION
  Report Type: 
  Country: None (occurrence: None)
  Receive Date: 20091109
  Receipt Date: 20091102
  Transmission Date: 20100525
  Serious: Yes (Other)
  Sender: FDA-Public Use
  Company Number: US-JNJFOC-20091006993

PATIENT
  Sex: Female
  Weight: 46.27 kg

DRUGS (6)
  1. DURAGESIC-100 [Suspect]
     Route: 062
  2. DURAGESIC-100 [Suspect]
     Indication: PAIN
     Dosage: 1 PATCH EVERY 48-72 HOURS
     Route: 062
  3. DURAGESIC-100 [Suspect]
     Route: 062
  4. DURAGESIC-100 [Suspect]
     Route: 062
  5. DURAGESIC-100 [Suspect]
     Route: 062
  6. VICODIN [Concomitant]
     Indication: PAIN
     Route: 048

REACTIONS (11)
  - CHEST PAIN [None]
  - DRUG PRESCRIBING ERROR [None]
  - DYSGEUSIA [None]
  - HEADACHE [None]
  - MENTAL DISORDER [None]
  - MUSCULOSKELETAL PAIN [None]
  - NAUSEA [None]
  - PAIN [None]
  - PRODUCT QUALITY ISSUE [None]
  - THERAPY CESSATION [None]
  - VOMITING [None]
